FAERS Safety Report 20951759 (Version 1)
Quarter: 2022Q2

REPORT INFORMATION
  Report Type: Spontaneous
  Country: US (occurrence: US)
  Receive Date: 20220613
  Receipt Date: 20220613
  Transmission Date: 20220721
  Serious: No
  Sender: FDA-Public Use
  Company Number: US-009507513-2205USA005354

PATIENT
  Age: 49 Year
  Sex: Male

DRUGS (6)
  1. STROMECTOL [Suspect]
     Active Substance: IVERMECTIN
     Indication: Disseminated strongyloidiasis
     Dosage: 0.2 MG/KG, UNK
     Route: 048
  2. VANCOMYCIN [Concomitant]
     Active Substance: VANCOMYCIN
     Indication: Meningitis bacterial
     Dosage: UNK
  3. CEFEPIME [Concomitant]
     Active Substance: CEFEPIME HYDROCHLORIDE
     Indication: Meningitis bacterial
     Dosage: UNK
  4. AMPICILLIN [Concomitant]
     Active Substance: AMPICILLIN
     Indication: Meningitis bacterial
     Dosage: UNK
  5. ACYCLOVIR [Concomitant]
     Active Substance: ACYCLOVIR
     Indication: Meningitis bacterial
     Dosage: UNK
  6. MEROPENEM [Concomitant]
     Active Substance: MEROPENEM
     Indication: Meningitis bacterial
     Dosage: UNK

REACTIONS (1)
  - Product use in unapproved indication [Unknown]
